FAERS Safety Report 20824751 (Version 1)
Quarter: 2022Q2

REPORT INFORMATION
  Report Type: Spontaneous
  Country: US (occurrence: None)
  Receive Date: 20220512
  Receipt Date: 20220512
  Transmission Date: 20220721
  Serious: Yes (Disabling, Other)
  Sender: FDA-Public Use
  Company Number: None

PATIENT
  Age: 60 Year
  Sex: Female
  Weight: 72 kg

DRUGS (6)
  1. BELBUCA [Suspect]
     Active Substance: BUPRENORPHINE HYDROCHLORIDE
     Indication: Pain
     Route: 002
  2. OXYCODONE [Suspect]
     Active Substance: OXYCODONE
  3. SUBOXONE [Suspect]
     Active Substance: BUPRENORPHINE HYDROCHLORIDE\NALOXONE HYDROCHLORIDE
  4. DULOXETINE [Concomitant]
     Active Substance: DULOXETINE
  5. AMLODIPINE [Concomitant]
  6. TIZANIDINE [Concomitant]
     Active Substance: TIZANIDINE

REACTIONS (8)
  - Migraine [None]
  - Nausea [None]
  - Dizziness [None]
  - Constipation [None]
  - Insomnia [None]
  - Fatigue [None]
  - Withdrawal syndrome [None]
  - Back pain [None]

NARRATIVE: CASE EVENT DATE: 20210501
